FAERS Safety Report 10971292 (Version 1)
Quarter: 2015Q1

REPORT INFORMATION
  Report Type: Report from Study
  Country: BR (occurrence: BR)
  Receive Date: 20150331
  Receipt Date: 20150331
  Transmission Date: 20150721
  Serious: Yes (Hospitalization, Other)
  Sender: FDA-Public Use
  Company Number: BR-ABBVIE-09P-020-0600101-00

PATIENT
  Age: 76 Year
  Sex: Female
  Weight: 53 kg

DRUGS (5)
  1. ALGE RELAX FUERTE [Concomitant]
     Indication: PAIN
     Route: 048
  2. AZORGA [Concomitant]
     Active Substance: BRINZOLAMIDE\TIMOLOL MALEATE
     Indication: GLAUCOMA
     Dosage: IN EACH EYE, DAILY
     Route: 061
  3. HUMIRA [Suspect]
     Active Substance: ADALIMUMAB
     Indication: RHEUMATOID ARTHRITIS
     Route: 058
     Dates: start: 20080107
  4. LEFLUNOMIDE. [Concomitant]
     Active Substance: LEFLUNOMIDE
     Indication: RHEUMATOID ARTHRITIS
     Route: 048
  5. LORAX [Concomitant]
     Active Substance: LORAZEPAM
     Indication: INSOMNIA
     Route: 048

REACTIONS (3)
  - Anxiety [Unknown]
  - Pain [Recovered/Resolved]
  - Ischaemia [Recovering/Resolving]

NARRATIVE: CASE EVENT DATE: 200810
